FAERS Safety Report 7642876-0 (Version None)
Quarter: 2011Q3

REPORT INFORMATION
  Report Type: 
  Country: None (occurrence: None)
  Receive Date: 20110728
  Receipt Date: 20110714
  Transmission Date: 20111222
  Serious: Yes (Other)
  Sender: FDA-Public Use
  Company Number: PHHY2011US63352

PATIENT
  Age: 7 Month
  Sex: Female

DRUGS (11)
  1. ANTI-THYMOCYTE GLOBULIN NOS [Concomitant]
     Dosage: UNK UKN, UNK
  2. METHOTREXATE [Suspect]
     Dosage: 6 MG, UNK
     Route: 037
  3. ETOPOSIDE [Concomitant]
     Dosage: UNK UKN, UNK
  4. CYCLOPHOSPHAMIDE [Concomitant]
     Dosage: UNK UKN, UNK
  5. DEXAMETHASONE [Concomitant]
     Dosage: 1 MG/M2
     Route: 048
  6. DEXAMETHASONE [Concomitant]
     Dosage: 0.5 MG/M2
     Route: 048
  7. HYDROCORTISONE [Suspect]
     Dosage: 6 MG
  8. CYCLOSPORINE [Suspect]
     Indication: PROPHYLAXIS AGAINST GRAFT VERSUS HOST DISEASE
     Dosage: UNK UKN, UNK
  9. DEXAMETHASONE [Concomitant]
     Dosage: 10 MG/M2
     Route: 048
  10. BUSULFAN [Concomitant]
     Dosage: UNK UKN, UNK
  11. MYCOPHENOLATE MOFETIL [Concomitant]
     Indication: PROPHYLAXIS AGAINST GRAFT VERSUS HOST DISEASE
     Dosage: UNK UKN, UNK

REACTIONS (13)
  - CSF MONOCYTE COUNT POSITIVE [None]
  - CEREBELLAR ATROPHY [None]
  - DEVELOPMENTAL DELAY [None]
  - BODY HEIGHT BELOW NORMAL [None]
  - HISTIOCYTOSIS HAEMATOPHAGIC [None]
  - GLIOSIS [None]
  - PHOTOPHOBIA [None]
  - LETHARGY [None]
  - ADRENAL INSUFFICIENCY [None]
  - HYPERTENSION [None]
  - OSTEOPENIA [None]
  - TIBIA FRACTURE [None]
  - IRRITABILITY [None]
